FAERS Safety Report 8394347-4 (Version None)
Quarter: 2012Q2

REPORT INFORMATION
  Report Type: 
  Country: None (occurrence: None)
  Receive Date: 20120530
  Receipt Date: 20120522
  Transmission Date: 20120825
  Serious: Yes (Life-Threatening)
  Sender: FDA-Public Use
  Company Number: CA-ASTRAZENECA-2012SE32935

PATIENT
  Age: 62 Year
  Sex: Female

DRUGS (1)
  1. PROPOFOL [Suspect]
     Indication: ANAESTHESIA PROCEDURE
     Route: 042

REACTIONS (8)
  - CARDIAC FAILURE CONGESTIVE [None]
  - MULTI-ORGAN FAILURE [None]
  - RENAL FAILURE ACUTE [None]
  - ENCEPHALOPATHY [None]
  - STRESS CARDIOMYOPATHY [None]
  - MUSCULAR WEAKNESS [None]
  - DYSARTHRIA [None]
  - PROPOFOL INFUSION SYNDROME [None]
